FAERS Safety Report 9017208 (Version 1)
Quarter: 2013Q1

REPORT INFORMATION
  Report Type: Spontaneous
  Country: US (occurrence: US)
  Receive Date: 20130117
  Receipt Date: 20130117
  Transmission Date: 20140127
  Serious: No
  Sender: FDA-Public Use
  Company Number: US-TEVA-380596USA

PATIENT
  Sex: Female

DRUGS (3)
  1. COPAXONE [Suspect]
     Indication: MULTIPLE SCLEROSIS
     Dosage: 20 MILLIGRAM DAILY;
     Route: 058
     Dates: start: 201205, end: 201210
  2. CALBERLIN [Concomitant]
     Indication: PROLACTINOMA
     Dosage: .0714 MILLIGRAM DAILY;
  3. TEMAZEPAM [Concomitant]
     Indication: INSOMNIA
     Dosage: AS NEEDED

REACTIONS (1)
  - Liver function test abnormal [Recovered/Resolved]
